FAERS Safety Report 5105904-2 (Version None)
Quarter: 2006Q3

REPORT INFORMATION
  Report Type: 
  Country: None (occurrence: None)
  Receive Date: 20060912
  Receipt Date: 20060828
  Transmission Date: 20061208
  Serious: Yes (Disabling, Other)
  Sender: FDA-Public Use
  Company Number: US200608006046

PATIENT
  Sex: Female

DRUGS (6)
  1. HUMALOG [Suspect]
     Indication: DIABETES MELLITUS
     Dosage: AS NEEDED
     Dates: start: 20020101, end: 20060801
  2. HUMULIN R [Suspect]
     Indication: DIABETES MELLITUS
  3. HUMULIN L [Suspect]
     Indication: DIABETES MELLITUS
  4. INSULIN, ANIMAL (INSULIN, ANIMAL) VIAL [Suspect]
     Indication: DIABETES MELLITUS
     Dates: start: 19700101
  5. MULTIVITAMINS, PLAIN [Concomitant]
  6. NOVOLOG [Concomitant]

REACTIONS (6)
  - BIPOLAR I DISORDER [None]
  - BLOOD GLUCOSE INCREASED [None]
  - CATARACT [None]
  - DIABETIC RETINOPATHY [None]
  - OSTEOPENIA [None]
  - POOR QUALITY DRUG ADMINISTERED [None]
